FAERS Safety Report 15001681 (Version 1)
Quarter: 2018Q2

REPORT INFORMATION
  Report Type: Spontaneous
  Country: US (occurrence: US)
  Receive Date: 20180612
  Receipt Date: 20180612
  Transmission Date: 20180711
  Serious: No
  Sender: FDA-Public Use
  Company Number: US-BAYER-2018-107151

PATIENT
  Age: 64 Year
  Sex: Female

DRUGS (1)
  1. CLIMARA PRO [Suspect]
     Active Substance: ESTRADIOL\LEVONORGESTREL
     Indication: OSTEOPOROSIS
     Dosage: UNK
     Route: 062
     Dates: start: 2008, end: 201805

REACTIONS (2)
  - Product availability issue [None]
  - Migraine [None]

NARRATIVE: CASE EVENT DATE: 20180530
